FAERS Safety Report 9531817 (Version 1)
Quarter: 2013Q2

REPORT INFORMATION
  Report Type: Spontaneous
  Country: US (occurrence: None)
  Receive Date: 20130418
  Receipt Date: 20130418
  Transmission Date: 20140414
  Serious: No
  Sender: FDA-Public Use
  Company Number: 2013PROUSA02463

PATIENT
  Age: 72 Year
  Sex: Male
  Weight: 86.2 kg

DRUGS (6)
  1. PROVENGE [Suspect]
     Indication: PROSTATE CANCER METASTATIC
     Route: 042
     Dates: start: 20120907, end: 20120907
  2. ATORVASTATIN (ATORVASTATIN CALCIUM) [Concomitant]
  3. METOPROLOL SUCCINATE (METOPROLOL SUCCINATE) [Concomitant]
  4. LISINOPRIL (LISINOPRIL) [Concomitant]
  5. URIBEL (HYOSCYAMINE SULFATE, METHENAMINE, METHYLTHIONINIUM CHLORIDE, PHENYL SALICYLATE, SODIUM PHOSPHATE MONOBASIC) [Concomitant]
  6. ASPIRIN (ACETYLSALICYLIC ACID) [Concomitant]

REACTIONS (1)
  - Disease progression [None]
